FAERS Safety Report 6683151-0 (Version None)
Quarter: 2010Q2

REPORT INFORMATION
  Report Type: 
  Country: None (occurrence: None)
  Receive Date: 20100415
  Receipt Date: 20100409
  Transmission Date: 20101027
  Serious: Yes (Death, Other)
  Sender: FDA-Public Use
  Company Number: FR-BRISTOL-MYERS SQUIBB COMPANY-15057649

PATIENT
  Age: 84 Year
  Sex: Male
  Weight: 56 kg

DRUGS (11)
  1. COUMADIN [Suspect]
     Indication: PULMONARY EMBOLISM
     Dosage: 4MG(18-22MAR2010,5D);5MG(23-24MAR2010,2D);6MG(25-28MAR2010,4D).
     Route: 048
     Dates: start: 20100318, end: 20100328
  2. ARIXTRA [Suspect]
     Indication: PULMONARY EMBOLISM
     Dosage: STRENGTH: 7.5MG/0.6ML
     Route: 058
     Dates: start: 20100314, end: 20100328
  3. OMIX [Concomitant]
  4. AMLOR [Concomitant]
  5. EUPRESSYL [Concomitant]
     Dosage: DRUG STOPPED.
     Dates: end: 20100317
  6. TRILEPTAL [Concomitant]
  7. DEROXAT [Concomitant]
  8. SERESTA [Concomitant]
     Dosage: 10MG
  9. COVERSYL [Concomitant]
     Dates: start: 20100318
  10. BISOPROLOL FUMARATE [Concomitant]
  11. ROCEPHIN [Concomitant]
     Indication: INFECTION
     Dosage: DRUG STOPPED.
     Dates: start: 20100314, end: 20100101

REACTIONS (3)
  - FALL [None]
  - INTERNATIONAL NORMALISED RATIO DECREASED [None]
  - SUBDURAL HAEMATOMA [None]
